FAERS Safety Report 9009181 (Version 1)
Quarter: 2013Q1

REPORT INFORMATION
  Report Type: Spontaneous
  Country: US (occurrence: US)
  Receive Date: 20130111
  Receipt Date: 20130111
  Transmission Date: 20140127
  Serious: No
  Sender: FDA-Public Use
  Company Number: US-009507513-1212USA007041

PATIENT
  Sex: 0

DRUGS (1)
  1. TICE BCG LIVE [Suspect]

REACTIONS (3)
  - Bladder stenosis [Unknown]
  - Drug dose omission [Unknown]
  - Device malfunction [Unknown]
